FAERS Safety Report 4637006-3 (Version None)
Quarter: 2005Q2

REPORT INFORMATION
  Report Type: 
  Country: None (occurrence: None)
  Receive Date: 20050414
  Receipt Date: 20050405
  Transmission Date: 20051028
  Serious: Yes (Hospitalization)
  Sender: FDA-Public Use
  Company Number: 230064M05USA

PATIENT
  Age: 41 Year
  Sex: Female

DRUGS (1)
  1. REBIF [Suspect]
     Indication: MULTIPLE SCLEROSIS
     Dates: start: 20040101

REACTIONS (6)
  - ARTHRITIS BACTERIAL [None]
  - CELLULITIS [None]
  - INJECTION SITE INFECTION [None]
  - MYOSITIS [None]
  - SEPSIS [None]
  - TENOSYNOVITIS [None]
